FAERS Safety Report 26040168 (Version 1)
Quarter: 2025Q4

REPORT INFORMATION
  Report Type: Spontaneous
  Country: US (occurrence: US)
  Receive Date: 20251113
  Receipt Date: 20251113
  Transmission Date: 20260118
  Serious: No
  Sender: NOVARTIS
  Company Number: US-ORG100013279-032358

PATIENT
  Sex: Male

DRUGS (1)
  1. LAMISIL [Suspect]
     Active Substance: TERBINAFINE HYDROCHLORIDE
     Indication: Fungal infection
     Dosage: UNK, DOSE: PEA SIZE IN EACH AFFECTED AREA, TOPICAL
     Route: 065
     Dates: start: 20241202

REACTIONS (1)
  - Drug ineffective [Unknown]
